FAERS Safety Report 18846201 (Version 1)
Quarter: 2021Q1

REPORT INFORMATION
  Report Type: Spontaneous
  Country: JP (occurrence: JP)
  Receive Date: 20210203
  Receipt Date: 20210203
  Transmission Date: 20210419
  Serious: Yes (Other)
  Sender: FDA-Public Use
  Company Number: JP-CELLTRION INC.-2021JP000895

PATIENT

DRUGS (20)
  1. TRASTUZUMAB (UNKNOWN) [Suspect]
     Active Substance: TRASTUZUMAB
     Indication: BREAST CANCER METASTATIC
     Dosage: 8 MG/KG LOADING DOSE FOUR TIMES EVERY 3 WEEKS
     Route: 042
  2. TRASTUZUMAB EMTANSINE [Suspect]
     Active Substance: ADO-TRASTUZUMAB EMTANSINE
     Indication: METASTASES TO LIVER
     Dosage: 3.6 MG/KG EVERY 3 WEEKS TOTAL OF 10 CYCLES AMONG 32 WEEKS
  3. PERTUZUMAB. [Suspect]
     Active Substance: PERTUZUMAB
     Dosage: 420 MG
     Route: 042
  4. PACLITAXEL. [Suspect]
     Active Substance: PACLITAXEL
     Indication: METASTASES TO LIVER
     Dosage: 70% OF THE FULL DOSE (90 MG/M2) AMONG 29 WEEKS
  5. LETROZOLE. [Suspect]
     Active Substance: LETROZOLE
     Indication: BREAST CANCER METASTATIC
     Dosage: FULL?DOSE LETROZOLE, WHICH WAS SCHEDULED FOR 10 YEARS
  6. PERTUZUMAB. [Suspect]
     Active Substance: PERTUZUMAB
     Dosage: FOURTH?LINE TREATMENT OF FULL?DOSE FOR 9 CYCLES
  7. VINORELBINE [Suspect]
     Active Substance: VINORELBINE TARTRATE
     Indication: METASTASES TO LIVER
     Dosage: FOURTH?LINE TREATMENT, (VNR; 25 MG/M2 ON DAYS 1 AND 8 EVERY 3 WEEKS)
  8. TRASTUZUMAB (UNKNOWN) [Suspect]
     Active Substance: TRASTUZUMAB
     Dosage: THIRD?LINE TREATMENT OF FULL?DOSE FOR NINE CYCLES
  9. TRASTUZUMAB EMTANSINE [Suspect]
     Active Substance: ADO-TRASTUZUMAB EMTANSINE
     Indication: DISEASE RECURRENCE
  10. CYCLOPHOSPHAMIDE. [Suspect]
     Active Substance: CYCLOPHOSPHAMIDE
     Indication: BREAST CANCER METASTATIC
     Dosage: 600 MG/M2 FOUR TIMES EVERY 3 WEEKS,
     Route: 042
  11. TRASTUZUMAB (UNKNOWN) [Suspect]
     Active Substance: TRASTUZUMAB
     Dosage: FULL?DOSE AS MONOTHERAPY EVERY 3 WEEKS, WHICH WAS SCHEDULED FOR 14 CYCLES
  12. TRASTUZUMAB (UNKNOWN) [Suspect]
     Active Substance: TRASTUZUMAB
     Dosage: NINE CYCLES OF FULL?DOSE T?MAB FOR LIVER METASTASES
  13. PERTUZUMAB. [Suspect]
     Active Substance: PERTUZUMAB
     Indication: METASTASES TO LIVER
     Dosage: 840 MG LOADING DOSE
     Route: 042
  14. TRASTUZUMAB (UNKNOWN) [Suspect]
     Active Substance: TRASTUZUMAB
     Indication: METASTASES TO LIVER
     Dosage: 6 MG/KG  FOUR TIMES EVERY 3 WEEKS
     Route: 042
  15. TRASTUZUMAB (UNKNOWN) [Suspect]
     Active Substance: TRASTUZUMAB
     Dosage: FOUR CYCLES
  16. TRASTUZUMAB (UNKNOWN) [Suspect]
     Active Substance: TRASTUZUMAB
     Dosage: FOURTH?LINE TREATMENT
  17. ERIBULIN [Suspect]
     Active Substance: ERIBULIN
     Indication: METASTASES TO LIVER
     Dosage: 1.4 MG/M2 ON DAYS 1 AND 8 EVERY 3 WEEKS
  18. DOCETAXEL. [Suspect]
     Active Substance: DOCETAXEL
     Indication: BREAST CANCER METASTATIC
     Dosage: 75 MG/M2
     Route: 042
  19. DOCETAXEL. [Suspect]
     Active Substance: DOCETAXEL
     Dosage: FOUR CYCLES
  20. PERTUZUMAB. [Suspect]
     Active Substance: PERTUZUMAB
     Dosage: THIRD?LINE TREATMENT OF FULL?DOSE FOR 9 CYCLES

REACTIONS (6)
  - Oedema [Unknown]
  - Metastases to liver [Unknown]
  - Breast cancer recurrent [Unknown]
  - Carbohydrate antigen 15-3 increased [Unknown]
  - Hypoaesthesia [Unknown]
  - Off label use [Unknown]
